FAERS Safety Report 19807792 (Version 3)
Quarter: 2021Q3

REPORT INFORMATION
  Report Type: Spontaneous
  Country: IT (occurrence: IT)
  Receive Date: 20210908
  Receipt Date: 20210922
  Transmission Date: 20211014
  Serious: Yes (Disabling)
  Sender: FDA-Public Use
  Company Number: IT-ALLERGAN-2131284US

PATIENT
  Sex: Female
  Weight: 50 kg

DRUGS (4)
  1. SILODOSIN ? BP [Suspect]
     Active Substance: SILODOSIN
     Dosage: 8 MG, QD
     Route: 048
     Dates: start: 20210415, end: 20210507
  2. URORIAL FOOD SUPPLEMENT (HYALURONIC ACID, VIT C, D MANNOSE,  CRANBERRY [Concomitant]
  3. DELORAZEPAM [Concomitant]
     Active Substance: DELORAZEPAM
     Indication: SLEEP DISORDER
     Dosage: UNK
  4. SILODOSIN ? BP [Suspect]
     Active Substance: SILODOSIN
     Indication: URINARY RETENTION
     Dosage: 4 MG

REACTIONS (8)
  - Dizziness [Recovered/Resolved]
  - Tinnitus [Not Recovered/Not Resolved]
  - Misophonia [Recovering/Resolving]
  - Headache [Recovered/Resolved]
  - Blood pressure decreased [Recovered/Resolved]
  - Intentional product use issue [Unknown]
  - Nausea [Recovered/Resolved]
  - Vomiting [Recovered/Resolved]

NARRATIVE: CASE EVENT DATE: 20210418
